FAERS Safety Report 16942908 (Version 2)
Quarter: 2019Q4

REPORT INFORMATION
  Report Type: Report from Study
  Country: US (occurrence: US)
  Receive Date: 20191021
  Receipt Date: 20191028
  Transmission Date: 20200122
  Serious: Yes (Hospitalization)
  Sender: FDA-Public Use
  Company Number: US-JNJFOC-20190923988

PATIENT
  Age: 72 Year
  Sex: Female

DRUGS (44)
  1. CYCLOBENZAPRINE. [Concomitant]
     Active Substance: CYCLOBENZAPRINE
  2. VALACICLOVIR HYDROCHLORIDE [Concomitant]
     Active Substance: VALACYCLOVIR HYDROCHLORIDE
  3. FLAGYL [Concomitant]
     Active Substance: METRONIDAZOLE\METRONIDAZOLE HYDROCHLORIDE
  4. LIDOCAINE. [Concomitant]
     Active Substance: LIDOCAINE
  5. PROMETHAZINE [Concomitant]
     Active Substance: PROMETHAZINE HYDROCHLORIDE
  6. CENTRUM SILVER                     /02363801/ [Concomitant]
     Active Substance: MINERALS\VITAMINS
  7. IMBRUVICA [Suspect]
     Active Substance: IBRUTINIB
     Dosage: 140 MG, QD
     Route: 048
     Dates: start: 20190607
  8. VITAMIN E                          /00110501/ [Concomitant]
     Active Substance: TOCOPHEROL
  9. WELLBUTRIN [Concomitant]
     Active Substance: BUPROPION HYDROCHLORIDE
  10. ALLOPURINOL SODIUM. [Concomitant]
     Active Substance: ALLOPURINOL SODIUM
  11. VESICARE [Concomitant]
     Active Substance: SOLIFENACIN SUCCINATE
  12. ZITHROMAX [Concomitant]
     Active Substance: AZITHROMYCIN DIHYDRATE
  13. CHLORZOXAZONE. [Concomitant]
     Active Substance: CHLORZOXAZONE
  14. NORCO [Concomitant]
     Active Substance: ACETAMINOPHEN\HYDROCODONE BITARTRATE
  15. COENZYME Q10 [Concomitant]
     Active Substance: UBIDECARENONE
  16. ONDANSETRON [Concomitant]
     Active Substance: ONDANSETRON
  17. OXYCODONE [Concomitant]
     Active Substance: OXYCODONE
  18. OMNICEF                            /00497602/ [Concomitant]
     Active Substance: CEFOTAXIME SODIUM
  19. KEFLEX [Concomitant]
     Active Substance: CEPHALEXIN
     Dosage: UNK
  20. COMPAZINE                          /00013302/ [Concomitant]
     Active Substance: PROCHLORPERAZINE EDISYLATE
  21. PANTOPRAZOLE SODIUM. [Concomitant]
     Active Substance: PANTOPRAZOLE SODIUM
  22. FISH OIL [Concomitant]
     Active Substance: FISH OIL
  23. IMBRUVICA [Suspect]
     Active Substance: IBRUTINIB
     Indication: BREAST CANCER FEMALE
     Dosage: 420 MG, QD
     Route: 048
  24. ULORIC [Concomitant]
     Active Substance: FEBUXOSTAT
  25. METOPROLOL. [Concomitant]
     Active Substance: METOPROLOL
  26. PROZAC [Concomitant]
     Active Substance: FLUOXETINE HYDROCHLORIDE
  27. CLOPIDOGREL [Concomitant]
     Active Substance: CLOPIDOGREL BISULFATE
  28. PANTOPRAZOLE SODIUM. [Concomitant]
     Active Substance: PANTOPRAZOLE SODIUM
  29. LORATADINE. [Concomitant]
     Active Substance: LORATADINE
  30. NYSTATIN. [Concomitant]
     Active Substance: NYSTATIN
  31. IMBRUVICA [Suspect]
     Active Substance: IBRUTINIB
     Indication: CHRONIC LYMPHOCYTIC LEUKAEMIA
     Dosage: 420 MG, QD
     Route: 048
     Dates: start: 20190107
  32. CALCIUM UNSPECIFIED [Concomitant]
  33. OMEGA 3                            /01333901/ [Concomitant]
     Active Substance: FISH OIL\TOCOPHEROL
  34. CARBIDOPA. [Concomitant]
     Active Substance: CARBIDOPA
  35. ANASTROZOLE. [Concomitant]
     Active Substance: ANASTROZOLE
  36. BUPROPION. [Concomitant]
     Active Substance: BUPROPION
     Dosage: BUPROPION HCL ER
  37. TRULICITY [Concomitant]
     Active Substance: DULAGLUTIDE
     Dosage: UNK
  38. ACYCLOVIR                          /00587301/ [Concomitant]
     Active Substance: ACYCLOVIR
  39. PREDNISONE. [Concomitant]
     Active Substance: PREDNISONE
  40. FENOFIBRATE. [Concomitant]
     Active Substance: FENOFIBRATE
  41. VITAMIN D                          /00107901/ [Concomitant]
     Active Substance: ERGOCALCIFEROL
  42. BACTRIM DS [Concomitant]
     Active Substance: SULFAMETHOXAZOLE\TRIMETHOPRIM
  43. PIOGLITAZONE. [Concomitant]
     Active Substance: PIOGLITAZONE
  44. CRESTOR [Concomitant]
     Active Substance: ROSUVASTATIN CALCIUM

REACTIONS (5)
  - Heart rate irregular [Unknown]
  - Off label use [Unknown]
  - Haemoptysis [Recovered/Resolved]
  - Product use in unapproved indication [Unknown]
  - Cough [Unknown]

NARRATIVE: CASE EVENT DATE: 20190607
